FAERS Safety Report 10948117 (Version 1)
Quarter: 2015Q1

REPORT INFORMATION
  Report Type: Spontaneous
  Country: None (occurrence: None)
  Receive Date: 20150323
  Receipt Date: 20150323
  Transmission Date: 20150721
  Serious: Yes (Death, Hospitalization)
  Sender: FDA-Public Use
  Company Number: None

PATIENT
  Age: 50 Year
  Sex: Male
  Weight: 63.9 kg

DRUGS (1)
  1. CASODEX [Suspect]
     Active Substance: BICALUTAMIDE
     Dates: end: 20150306

REACTIONS (3)
  - Pulmonary embolism [None]
  - Acute respiratory distress syndrome [None]
  - Multi-organ failure [None]

NARRATIVE: CASE EVENT DATE: 20150308
